FAERS Safety Report 24747521 (Version 5)
Quarter: 2025Q1

REPORT INFORMATION
  Report Type: Spontaneous
  Country: ES (occurrence: ES)
  Receive Date: 20241218
  Receipt Date: 20250329
  Transmission Date: 20250408
  Serious: Yes (Hospitalization, Other)
  Sender: AUROBINDO
  Company Number: ES-ABBVIE-6032508

PATIENT
  Age: 75 Year
  Sex: Male

DRUGS (6)
  1. TAMSULOSIN [Suspect]
     Active Substance: TAMSULOSIN
     Indication: Product used for unknown indication
     Route: 065
     Dates: end: 2024
  2. CARBIDOPA\LEVODOPA [Suspect]
     Active Substance: CARBIDOPA\LEVODOPA
     Indication: Parkinson^s disease
     Route: 058
     Dates: start: 20241007
  3. CARBIDOPA\LEVODOPA [Suspect]
     Active Substance: CARBIDOPA\LEVODOPA
     Route: 058
     Dates: start: 2024
  4. ASPIRIN [Concomitant]
     Active Substance: ASPIRIN
     Indication: Acute myocardial infarction
     Dosage: 100 MILLIGRAM, ONCE A DAY
     Route: 048
  5. OMEPRAZOLE [Concomitant]
     Active Substance: OMEPRAZOLE
     Indication: Product used for unknown indication
     Dosage: 40 MILLIGRAM, ONCE A DAY
     Route: 065
  6. LEVETIRACETAM [Concomitant]
     Active Substance: LEVETIRACETAM
     Indication: Epilepsy
     Dosage: 500 MILLIGRAM, ONCE A DAY
     Route: 048
     Dates: start: 20250131

REACTIONS (8)
  - Loss of consciousness [Recovered/Resolved]
  - Musculoskeletal stiffness [Recovered/Resolved]
  - Syncope [Recovered/Resolved]
  - Hallucination [Recovered/Resolved]
  - Meningioma [Recovering/Resolving]
  - Epilepsy [Recovered/Resolved]
  - Fall [Unknown]
  - Hypotension [Unknown]

NARRATIVE: CASE EVENT DATE: 20240101
